FAERS Safety Report 22020708 (Version 1)
Quarter: 2023Q1

REPORT INFORMATION
  Report Type: Spontaneous
  Country: US (occurrence: None)
  Receive Date: 20230217
  Receipt Date: 20230217
  Transmission Date: 20230417
  Serious: Yes (Other)
  Sender: FDA-Public Use
  Company Number: None

PATIENT
  Age: 33 Year
  Sex: Male
  Weight: 85.5 kg

DRUGS (1)
  1. TEMOZOLOMIDE [Suspect]
     Active Substance: TEMOZOLOMIDE
     Indication: Brain neoplasm malignant
     Dosage: FREQUENCY : AT BEDTIME;?
     Route: 048
     Dates: start: 20221226, end: 20221230

REACTIONS (2)
  - Hypersensitivity [None]
  - Product substitution issue [None]

NARRATIVE: CASE EVENT DATE: 20230101
